FAERS Safety Report 24396496 (Version 1)
Quarter: 2024Q4

REPORT INFORMATION
  Report Type: Spontaneous
  Country: US (occurrence: US)
  Receive Date: 20241004
  Receipt Date: 20241004
  Transmission Date: 20250115
  Serious: No
  Sender: ROCHE
  Company Number: US-ROCHE-10000091125

PATIENT
  Sex: Female

DRUGS (1)
  1. TECENTRIQ [Suspect]
     Active Substance: ATEZOLIZUMAB
     Indication: Neoplasm malignant
     Route: 065
     Dates: end: 202408

REACTIONS (2)
  - Seizure [Recovered/Resolved]
  - Tongue biting [Recovered/Resolved]

NARRATIVE: CASE EVENT DATE: 20240801
